FAERS Safety Report 21538230 (Version 1)
Quarter: 2022Q4

REPORT INFORMATION
  Report Type: Spontaneous
  Country: US (occurrence: US)
  Receive Date: 20221102
  Receipt Date: 20221102
  Transmission Date: 20230113
  Serious: Yes (Death, Hospitalization, Other)
  Sender: FDA-Public Use
  Company Number: US-AMGEN-USASP2022186172

PATIENT

DRUGS (1)
  1. APREMILAST [Suspect]
     Active Substance: APREMILAST
     Indication: Product used for unknown indication
     Dosage: UNK
     Route: 065

REACTIONS (12)
  - Lung neoplasm malignant [Fatal]
  - Malignant melanoma [Fatal]
  - Immune-mediated adverse reaction [Unknown]
  - Immune-mediated dermatitis [Unknown]
  - Immune-mediated enterocolitis [Unknown]
  - Immune-mediated endocrinopathy [Unknown]
  - Immune-mediated hepatitis [Unknown]
  - Immune-mediated lung disease [Unknown]
  - Immune-mediated arthritis [Unknown]
  - Immune-mediated nephritis [Unknown]
  - Rheumatoid arthritis [Unknown]
  - Psoriatic arthropathy [Unknown]
